FAERS Safety Report 14659864 (Version 1)
Quarter: 2018Q1

REPORT INFORMATION
  Report Type: Report from Study
  Country: IE (occurrence: IE)
  Receive Date: 20180320
  Receipt Date: 20180320
  Transmission Date: 20180509
  Serious: Yes (Hospitalization)
  Sender: FDA-Public Use
  Company Number: IE-JNJFOC-20171104460

PATIENT
  Age: 68 Year
  Sex: Male

DRUGS (17)
  1. ZYTIGA [Suspect]
     Active Substance: ABIRATERONE ACETATE
     Indication: PROSTATE CANCER
     Route: 048
     Dates: start: 20170717, end: 201801
  2. METFORMIN [Concomitant]
     Active Substance: METFORMIN HYDROCHLORIDE
     Route: 065
  3. ZIMOVANE [Concomitant]
     Active Substance: ZOPICLONE
     Route: 065
  4. CARDICOR [Concomitant]
     Active Substance: BISOPROLOL
     Route: 065
  5. ASPIRIN. [Concomitant]
     Active Substance: ASPIRIN
     Route: 065
  6. CALCIUP D3 FORTE [Concomitant]
     Route: 065
  7. ELANTAN [Concomitant]
     Active Substance: ISOSORBIDE MONONITRATE
     Route: 065
  8. ORAMORPH [Concomitant]
     Active Substance: MORPHINE SULFATE
     Route: 065
  9. BUSCOPAN [Concomitant]
     Active Substance: BUTYLSCOPOLAMINE BROMIDE
     Route: 065
  10. TRITACE [Concomitant]
     Active Substance: RAMIPRIL
     Route: 065
  11. ROSUVASTATIN. [Concomitant]
     Active Substance: ROSUVASTATIN
     Route: 065
  12. NEURONTIN [Concomitant]
     Active Substance: GABAPENTIN
     Route: 065
  13. XOFIGO [Concomitant]
     Active Substance: RADIUM RA-223 DICHLORIDE
     Route: 065
  14. PANTOPRAZOLE [Concomitant]
     Active Substance: PANTOPRAZOLE
     Route: 065
  15. ESCITALOPRAM [Concomitant]
     Active Substance: ESCITALOPRAM OXALATE
     Route: 065
  16. DELTACORTRIL [Concomitant]
     Active Substance: PREDNISOLONE
     Route: 065
  17. BUTRANS [Concomitant]
     Active Substance: BUPRENORPHINE
     Route: 065

REACTIONS (4)
  - Fatigue [Not Recovered/Not Resolved]
  - Hypotension [Not Recovered/Not Resolved]
  - Bone cancer [Recovering/Resolving]
  - Angina pectoris [Recovered/Resolved]

NARRATIVE: CASE EVENT DATE: 20171102
